FAERS Safety Report 6820158-4 (Version None)
Quarter: 2010Q3

REPORT INFORMATION
  Report Type: 
  Country: None (occurrence: None)
  Receive Date: 20100707
  Receipt Date: 20100630
  Transmission Date: 20110219
  Serious: Yes (Hospitalization, Disabling)
  Sender: FDA-Public Use
  Company Number: AU-MERCK-1005USA02018

PATIENT
  Age: 52 Year
  Sex: Male
  Weight: 80 kg

DRUGS (5)
  1. FOSAMAX PLUS D [Suspect]
     Indication: OSTEOGENESIS IMPERFECTA
     Route: 048
     Dates: start: 19970101
  2. SIMVASTATIN [Concomitant]
     Indication: BLOOD CHOLESTEROL
     Route: 048
  3. PERINDOPRIL [Concomitant]
     Indication: BLOOD PRESSURE
     Route: 065
  4. INDAPAMIDE [Concomitant]
     Route: 065
  5. FOLIC ACID [Concomitant]
     Route: 065

REACTIONS (1)
  - TENDON RUPTURE [None]
